FAERS Safety Report 13966016 (Version 6)
Quarter: 2018Q1

REPORT INFORMATION
  Report Type: Report from Study
  Country: US (occurrence: US)
  Receive Date: 20170913
  Receipt Date: 20180219
  Transmission Date: 20180508
  Serious: Yes (Hospitalization)
  Sender: FDA-Public Use
  Company Number: US-TEVA-805318USA

PATIENT
  Age: 74 Year
  Sex: Female
  Weight: 65.38 kg

DRUGS (14)
  1. 5-FLUOROURACIL [Suspect]
     Active Substance: FLUOROURACIL
     Indication: NEOPLASM
     Dosage: DAY 1 AND 15 OF 28-DAY CYCLE
     Route: 041
     Dates: start: 20170531
  2. IRINOTECAN [Suspect]
     Active Substance: IRINOTECAN
     Dosage: 12.8571 MG/M2 DAILY; DAY 1 AND 15 OF EACH 28-DAY CYCLE
     Route: 042
     Dates: start: 20170531
  3. LOSARTAN. [Concomitant]
     Active Substance: LOSARTAN
     Indication: HYPERTENSION
     Dosage: 50 MILLIGRAM DAILY;
     Route: 048
     Dates: start: 19950501
  4. ULTRAM [Concomitant]
     Active Substance: TRAMADOL HYDROCHLORIDE
     Indication: SLEEP DISORDER
     Dosage: 50 MILLIGRAM DAILY;
     Route: 048
     Dates: start: 20170512
  5. FOLINIC ACID [Suspect]
     Active Substance: LEUCOVORIN
     Indication: NEOPLASM
     Dosage: 28.5714 MG/M2 DAILY; DAY 1 AND 15 OF 28-DAY CYCLE
     Route: 042
     Dates: start: 20170531
  6. MEGACE [Concomitant]
     Active Substance: MEGESTROL ACETATE
     Indication: INCREASED APPETITE
     Dosage: 625 MILLIGRAM DAILY;
     Route: 048
     Dates: start: 20170515
  7. POTASSIUM [Concomitant]
     Active Substance: POTASSIUM
     Indication: HYPOKALAEMIA
     Route: 048
     Dates: start: 20170807
  8. ABT-165 [Suspect]
     Active Substance: INVESTIGATIONAL PRODUCT
     Dosage: DAY 1 AND 15 OF 28-DAY CYCLE
     Route: 042
     Dates: start: 20170531, end: 20170714
  9. ABT-165 [Suspect]
     Active Substance: INVESTIGATIONAL PRODUCT
     Dosage: DAY 1 AND 15 OF 28-DAY CYCLE
     Route: 042
     Dates: start: 20170705, end: 20170714
  10. MIRALAX [Concomitant]
     Active Substance: POLYETHYLENE GLYCOL 3350
     Indication: CONSTIPATION
     Route: 048
     Dates: start: 20170512
  11. ULTRAM [Concomitant]
     Active Substance: TRAMADOL HYDROCHLORIDE
     Indication: MUSCULOSKELETAL CHEST PAIN
  12. NORMAL SALINE [Concomitant]
     Active Substance: SODIUM CHLORIDE
     Indication: DEHYDRATION
     Route: 042
     Dates: start: 20170602, end: 20170602
  13. GRANISETRON [Concomitant]
     Active Substance: GRANISETRON
     Indication: NAUSEA
     Route: 042
     Dates: start: 20170602, end: 20170602
  14. FAMOTIDINE. [Concomitant]
     Active Substance: FAMOTIDINE
     Indication: GASTROOESOPHAGEAL REFLUX DISEASE
     Route: 042
     Dates: start: 20170602, end: 20170602

REACTIONS (1)
  - Non-cardiac chest pain [Recovered/Resolved]

NARRATIVE: CASE EVENT DATE: 20170810
